FAERS Safety Report 18591324 (Version 1)
Quarter: 2020Q4

REPORT INFORMATION
  Report Type: Spontaneous
  Country: SE (occurrence: SE)
  Receive Date: 20201208
  Receipt Date: 20201208
  Transmission Date: 20210114
  Serious: Yes (Hospitalization)
  Sender: FDA-Public Use
  Company Number: SE-BRISTOL-MYERS SQUIBB COMPANY-BMS-2020-103291

PATIENT
  Age: 63 Year
  Sex: Female

DRUGS (4)
  1. METFORMIN [Concomitant]
     Active Substance: METFORMIN HYDROCHLORIDE
     Indication: PRODUCT USED FOR UNKNOWN INDICATION
     Route: 065
  2. CARVERATIO [Concomitant]
     Indication: PRODUCT USED FOR UNKNOWN INDICATION
     Route: 065
  3. ELIQUIS [Suspect]
     Active Substance: APIXABAN
     Indication: CEREBROVASCULAR ACCIDENT PROPHYLAXIS
     Dosage: 1 TABLET, TWICE A DAY. MORNING AND EVENING
     Route: 048
     Dates: end: 202008
  4. ELIQUIS [Suspect]
     Active Substance: APIXABAN
     Dosage: 1 TABLET, TWICE A DAY. MORNING AND EVENING
     Route: 048
     Dates: start: 202010

REACTIONS (5)
  - Alopecia [Unknown]
  - Erythema [Unknown]
  - Vision blurred [Unknown]
  - Blood disorder [Unknown]
  - Skin fissures [Unknown]
